FAERS Safety Report 10018974 (Version 1)
Quarter: 2014Q1

REPORT INFORMATION
  Report Type: Spontaneous
  Country: US (occurrence: None)
  Receive Date: 20140314
  Receipt Date: 20140314
  Transmission Date: 20141002
  Serious: Yes (Other)
  Sender: FDA-Public Use
  Company Number: None

PATIENT
  Age: 68 Year
  Sex: Male

DRUGS (12)
  1. XTANDI 40MG ASTELLAS [Suspect]
     Indication: PROSTATE CANCER
     Route: 048
     Dates: start: 20130503
  2. OXYCODONE/ACETAMINOPHEN [Concomitant]
  3. ENOXAPARIN [Concomitant]
  4. DEXAMETHASONE [Concomitant]
  5. AMOX-CLAV [Concomitant]
  6. VITAMIN D3 [Concomitant]
  7. POTASSIUM [Concomitant]
  8. HYDROCHLOROTHIAZIDE [Concomitant]
  9. OMEPRAZOLE [Concomitant]
  10. SODIUM CHLORIDE [Concomitant]
  11. LASIX [Concomitant]
  12. BICALUTAMIDE [Concomitant]

REACTIONS (1)
  - Vision blurred [None]
